FAERS Safety Report 5350648-5 (Version None)
Quarter: 2007Q2

REPORT INFORMATION
  Report Type: 
  Country: None (occurrence: None)
  Receive Date: 20070608
  Receipt Date: 20070605
  Transmission Date: 20071010
  Serious: Yes (Hospitalization)
  Sender: FDA-Public Use
  Company Number: FR-AVENTIS-200711899FR

PATIENT
  Age: 38 Year
  Sex: Female
  Weight: 82 kg

DRUGS (3)
  1. LOVENOX [Suspect]
     Route: 058
     Dates: start: 20070309
  2. VENOFER [Suspect]
     Dosage: DOSE: 500 MG OVER 3 DAYS; FREQUENCY: IRREGULAR
     Route: 042
     Dates: start: 20070310, end: 20070312
  3. PERFALGAN [Suspect]
     Indication: DRUG USE FOR UNKNOWN INDICATION
     Route: 042
     Dates: start: 20070309

REACTIONS (4)
  - CHILLS [None]
  - CYANOSIS [None]
  - PYREXIA [None]
  - SEPSIS [None]
